FAERS Safety Report 12647741 (Version 1)
Quarter: 2016Q3

REPORT INFORMATION
  Report Type: Spontaneous
  Country: RU (occurrence: RU)
  Receive Date: 20160812
  Receipt Date: 20160812
  Transmission Date: 20161109
  Serious: Yes (Other)
  Sender: FDA-Public Use
  Company Number: RU-BAYER-2016-152317

PATIENT
  Sex: Female

DRUGS (1)
  1. MIRENA [Suspect]
     Active Substance: LEVONORGESTREL
     Dosage: 20 MCG/24HR, CONT
     Route: 015
     Dates: start: 201502

REACTIONS (4)
  - Agranulocytosis [None]
  - Hyperthyroidism [None]
  - Leukopenia [None]
  - Endometrial hyperplasia [None]

NARRATIVE: CASE EVENT DATE: 2016
